FAERS Safety Report 8518139-8 (Version None)
Quarter: 2012Q3

REPORT INFORMATION
  Report Type: 
  Country: None (occurrence: None)
  Receive Date: 20120718
  Receipt Date: 20110928
  Transmission Date: 20120928
  Serious: No
  Sender: FDA-Public Use
  Company Number: US-BRISTOL-MYERS SQUIBB COMPANY-16113912

PATIENT
  Age: 73 Year
  Sex: Male

DRUGS (3)
  1. CRESTOR [Suspect]
  2. COREG [Suspect]
  3. COUMADIN [Suspect]

REACTIONS (2)
  - DIZZINESS [None]
  - NAUSEA [None]
